FAERS Safety Report 19225771 (Version 2)
Quarter: 2021Q2

REPORT INFORMATION
  Report Type: Report from Study
  Country: US (occurrence: US)
  Receive Date: 20210506
  Receipt Date: 20210611
  Transmission Date: 20210717
  Serious: Yes (Other)
  Sender: FDA-Public Use
  Company Number: US-ROCHE-2820729

PATIENT
  Age: 73 Year
  Sex: Female
  Weight: 76.2 kg

DRUGS (3)
  1. IBRUTINIB [Suspect]
     Active Substance: IBRUTINIB
     Indication: CHRONIC LYMPHOCYTIC LEUKAEMIA
     Dosage: LAST ADMINISTERED DATE: 28/FEB/2021?ONE IN 28 DAYS
     Route: 048
     Dates: start: 20191204
  2. VENETOCLAX. [Suspect]
     Active Substance: VENETOCLAX
     Indication: CHRONIC LYMPHOCYTIC LEUKAEMIA
     Dosage: ON DAYS 1?28 OF CYCLES 3?14
     Route: 048
     Dates: start: 20191204
  3. OBINUTUZUMAB. [Suspect]
     Active Substance: OBINUTUZUMAB
     Indication: CHRONIC LYMPHOCYTIC LEUKAEMIA
     Dosage: LAST ADMINISTERED DATE: 25/FEB/2020?1, 2, 8, AND 15 OF CYCLE 1 AND ON DAY 1 OF CYCLES 2?6
     Route: 042
     Dates: start: 20191204

REACTIONS (1)
  - Squamous cell carcinoma [Recovered/Resolved]

NARRATIVE: CASE EVENT DATE: 20210301
